FAERS Safety Report 8577612-7 (Version None)
Quarter: 2012Q3

REPORT INFORMATION
  Report Type: 
  Country: None (occurrence: None)
  Receive Date: 20120807
  Receipt Date: 20120803
  Transmission Date: 20120928
  Serious: Yes (Disabling, Other)
  Sender: FDA-Public Use
  Company Number: BR-BAYER-2012-079045

PATIENT
  Age: 37 Year
  Sex: Female

DRUGS (4)
  1. FLUOXETINE HCL [Concomitant]
     Indication: DEPRESSION
  2. CARBAMAZEPINE [Concomitant]
     Indication: CONVULSION PROPHYLAXIS
     Route: 048
  3. OXYBUTYNIN CHLORIDE [Concomitant]
     Indication: POLLAKIURIA
  4. BETASERON [Suspect]
     Indication: MULTIPLE SCLEROSIS
     Dosage: 1 ML, QOD
     Route: 058
     Dates: start: 20120101

REACTIONS (3)
  - ABASIA [None]
  - ASTHENIA [None]
  - FATIGUE [None]
